FAERS Safety Report 24166643 (Version 1)
Quarter: 2024Q3

REPORT INFORMATION
  Report Type: Spontaneous
  Country: CN (occurrence: CN)
  Receive Date: 20240802
  Receipt Date: 20240802
  Transmission Date: 20241017
  Serious: Yes (Other)
  Sender: RANBAXY
  Company Number: CN-SUN PHARMACEUTICAL INDUSTRIES LTD-2024R1-458753

PATIENT
  Age: 61 Year
  Sex: Male

DRUGS (3)
  1. CARBOPLATIN [Suspect]
     Active Substance: CARBOPLATIN
     Indication: Squamous cell carcinoma of lung
     Dosage: 440 MILLIGRAM ON DAY 2
     Route: 041
  2. PACLITAXEL [Suspect]
     Active Substance: PACLITAXEL
     Indication: Squamous cell carcinoma of lung
     Dosage: ONE CYCLE
     Route: 065
     Dates: start: 202307
  3. PACLITAXEL [Suspect]
     Active Substance: PACLITAXEL
     Dosage: 395 MILLIGRAM ON DAY 2
     Route: 041

REACTIONS (2)
  - Tumour lysis syndrome [Recovered/Resolved]
  - Therapy partial responder [Unknown]
